FAERS Safety Report 7230279-2 (Version None)
Quarter: 2011Q1

REPORT INFORMATION
  Report Type: 
  Country: None (occurrence: None)
  Receive Date: 20110118
  Receipt Date: 20110114
  Transmission Date: 20110831
  Serious: Yes (Other)
  Sender: FDA-Public Use
  Company Number: US-PFIZER INC-2011010218

PATIENT
  Sex: Male
  Weight: 73 kg

DRUGS (5)
  1. CHANTIX [Suspect]
     Dosage: 1 MG, 1X/DAY
     Route: 048
     Dates: start: 20110112
  2. CHANTIX [Suspect]
     Dosage: 0.5 MG, 2X/DAY
     Route: 048
  3. TRAMADOL [Concomitant]
     Indication: BACK INJURY
     Dosage: UNK
  4. CHANTIX [Suspect]
     Dosage: 1 MG, 2X/DAY
     Route: 048
  5. CHANTIX [Suspect]
     Indication: SMOKING CESSATION THERAPY
     Dosage: 0.5 MG, 1X/DAY
     Route: 048
     Dates: start: 20101220

REACTIONS (3)
  - SOCIAL AVOIDANT BEHAVIOUR [None]
  - ABNORMAL DREAMS [None]
  - DEPRESSION [None]
